FAERS Safety Report 20229337 (Version 1)
Quarter: 2021Q4

REPORT INFORMATION
  Report Type: Spontaneous
  Country: SE (occurrence: SE)
  Receive Date: 20211225
  Receipt Date: 20211225
  Transmission Date: 20220303
  Serious: Yes (Hospitalization)
  Sender: FDA-Public Use
  Company Number: None

PATIENT
  Age: 79 Year
  Sex: Female

DRUGS (25)
  1. PAROXETINE [Suspect]
     Active Substance: PAROXETINE
     Dosage: DOSAGE: 2 TABLETS
  2. LYRICA [Suspect]
     Active Substance: PREGABALIN
     Dosage: 75 MG
     Route: 048
  3. VITAMINS [Concomitant]
     Active Substance: VITAMINS
     Dosage: BALANCE 2.3 % GLUCOSE 1.25 MMOL/L CALCIUM; PERITONEAL DIALYSIS FLUID
     Dates: start: 20210909
  4. POTASSIUM CHLORIDE [Concomitant]
     Active Substance: POTASSIUM CHLORIDE
     Dosage: 2X2; POTASSIUM CHLORIDE ORIFARM 750 MG PROLONGED-RELEASE TABLET
     Route: 048
     Dates: start: 20210812
  5. EXTRANEAL [Concomitant]
     Active Substance: CALCIUM CHLORIDE\ICODEXTRIN\MAGNESIUM CHLORIDE\SODIUM CHLORIDE\SODIUM LACTATE
     Dosage: IN DIALYSIS; EXTRANEAL PERITONEAL DIALYSIS FLUID
     Dates: start: 20210909
  6. LORATADINE [Concomitant]
     Active Substance: LORATADINE
     Dosage: LORATADINE ACTAVIS 10 MG TABLET
     Route: 048
     Dates: start: 20210902
  7. BRICANYL [Concomitant]
     Active Substance: TERBUTALINE SULFATE
     Dosage: 1-2 VB, 1-4 TIMES / DAY;  BRICANYL TURBOHALER 0.25 MG / DOSE INHALATION POWDER
     Route: 055
     Dates: start: 20210902
  8. FOLVIDON [Concomitant]
     Dosage: 1X1; FOLVIDON 1 MG TABLET
     Route: 048
     Dates: start: 20210909
  9. ZOPICLONE [Concomitant]
     Active Substance: ZOPICLONE
     Dosage: 0,5X1; ZOPICLONE ACTAVIS 7.5 MG FILM-COATED TABLET
     Dates: start: 20211012
  10. WARFARIN SODIUM [Concomitant]
     Active Substance: WARFARIN SODIUM
     Dosage: WARAN 2.5 MG TABLET
     Route: 048
     Dates: start: 2021
  11. ORUDIS [Concomitant]
     Active Substance: KETOPROFEN
     Dosage: ORUDIS 2.5% GEL
     Dates: start: 20210805
  12. GLYCOSAMINOGLYCANS [Concomitant]
     Active Substance: GLYCOSAMINOGLYCANS
     Dosage: HIRUDOID CREAM
     Dates: start: 20210708
  13. RENVELA [Concomitant]
     Active Substance: SEVELAMER CARBONATE
     Dosage: 2X3; RENVELA 800 MG FILM-COATED TABLET
     Route: 048
     Dates: start: 20210909
  14. UREA [Concomitant]
     Active Substance: UREA
     Dosage: CANODERM 5% CREAM
     Dates: start: 20210902
  15. LERCANIDIPINE [Concomitant]
     Active Substance: LERCANIDIPINE
     Dosage: 1X1; LERCANIDIPINE ACTAVIS 10 MG FILM-COATED TABLET
     Route: 048
     Dates: start: 20211110
  16. Furix [Concomitant]
     Dosage: 1X2; FURIX 500 MG TABLET
     Route: 048
     Dates: start: 20210812
  17. ACETAMINOPHEN [Concomitant]
     Active Substance: ACETAMINOPHEN
     Dosage: ALVEDON 500 MG FILM-COATED TABLET
     Route: 048
     Dates: start: 20210805
  18. ERYTHROPOIETIN [Concomitant]
     Active Substance: ERYTHROPOIETIN
     Dosage: 2 DF; EPORATIO 4000 IU / 0.5 ML SOLUTION FOR INJECTION IN A PRE-FILLED SYRINGE
     Route: 058
     Dates: start: 20210917
  19. Calcipos [Concomitant]
     Dosage: 1X3; CALCIPOS 500 MG FILM-COATED TABLET
     Route: 048
     Dates: start: 20210930
  20. IRON ISOMALTOSIDE 1000 [Concomitant]
     Active Substance: IRON ISOMALTOSIDE 1000
     Dosage: MONOFER 100 MG / ML SOLUTION FOR INJECTION / INFUSION
     Dates: start: 20211027
  21. ALFACALCIDOL [Concomitant]
     Active Substance: ALFACALCIDOL
     Dosage: 1X1; ALFACALCIDOL ORIFARM 0.25 MICROGRAM CAPSULE, SOFT
     Route: 048
     Dates: start: 20210909
  22. SYMBICORT [Concomitant]
     Active Substance: BUDESONIDE\FORMOTEROL FUMARATE DIHYDRATE
     Dosage: 1X2; SYMBICORT TURBOHALER 160 MICROGRAMS / 4.5 MICROGRAMS / INHALATION INHALATION
     Route: 055
     Dates: start: 20211112
  23. Betolvidone [Concomitant]
     Dosage: 1X1; BETOLVIDONE 1 MG TABLET
     Route: 048
     Dates: start: 20210902
  24. SODIUM PICOSULFATE [Concomitant]
     Active Substance: SODIUM PICOSULFATE
     Dosage: CILAXORAL 7.5 MG / ML ORAL DROPS, SOLUTION
     Route: 048
     Dates: start: 20210902
  25. LAXIMYL [Concomitant]
     Dosage: 1X1
     Route: 048
     Dates: start: 20210512

REACTIONS (2)
  - Muscle twitching [Recovered/Resolved]
  - Confusional state [Recovering/Resolving]

NARRATIVE: CASE EVENT DATE: 20211112
